FAERS Safety Report 10445456 (Version 2)
Quarter: 2014Q3

REPORT INFORMATION
  Report Type: Spontaneous
  Country: US (occurrence: US)
  Receive Date: 20140908
  Receipt Date: 20140908
  Transmission Date: 20150326
  Serious: Yes (Hospitalization, Other)
  Sender: FDA-Public Use
  Company Number: US-BRISTOL-MYERS SQUIBB COMPANY-19467513

PATIENT
  Age: 57 Year
  Sex: Female

DRUGS (2)
  1. LEXAPRO [Suspect]
     Active Substance: ESCITALOPRAM OXALATE
  2. ABILIFY [Suspect]
     Active Substance: ARIPIPRAZOLE
     Indication: DEPRESSION
     Dates: start: 201308

REACTIONS (6)
  - Myalgia [Unknown]
  - Panic attack [Unknown]
  - Feeling abnormal [Unknown]
  - Suicidal ideation [Unknown]
  - Adverse event [Unknown]
  - Dissociation [Unknown]
